FAERS Safety Report 16586592 (Version 5)
Quarter: 2019Q4

REPORT INFORMATION
  Report Type: Spontaneous
  Country: CO (occurrence: CO)
  Receive Date: 20190717
  Receipt Date: 20191205
  Transmission Date: 20200122
  Serious: Yes (Other)
  Sender: FDA-Public Use
  Company Number: CO-PFIZER INC-2019207090

PATIENT
  Age: 63 Year
  Sex: Female

DRUGS (2)
  1. REAMPLA [Suspect]
     Active Substance: PALBOCICLIB
     Indication: BREAST CANCER METASTATIC
     Dosage: 125 MG, UNK
     Route: 048
     Dates: start: 20190510
  2. REAMPLA [Suspect]
     Active Substance: PALBOCICLIB
     Dosage: 125 MG, UNK
     Route: 048
     Dates: start: 20190605

REACTIONS (11)
  - Infarction [Unknown]
  - Wound [Recovered/Resolved]
  - Malaise [Not Recovered/Not Resolved]
  - Pyrexia [Not Recovered/Not Resolved]
  - Hypersensitivity [Unknown]
  - Chills [Not Recovered/Not Resolved]
  - Neck pain [Unknown]
  - Depressed mood [Unknown]
  - Laboratory test abnormal [Unknown]
  - Pain [Unknown]
  - Asthenia [Unknown]

NARRATIVE: CASE EVENT DATE: 2019
